FAERS Safety Report 13620839 (Version 4)
Quarter: 2018Q3

REPORT INFORMATION
  Report Type: Spontaneous
  Country: JP (occurrence: JP)
  Receive Date: 20170607
  Receipt Date: 20180912
  Transmission Date: 20181010
  Serious: Yes (Hospitalization, Other)
  Sender: FDA-Public Use
  Company Number: PHJP2015JP020803

PATIENT
  Age: 45 Year
  Sex: Male

DRUGS (2)
  1. TEGRETOL [Suspect]
     Active Substance: CARBAMAZEPINE
     Indication: GLOSSOPHARYNGEAL NEURALGIA
     Dosage: 300 MG, QD
     Route: 048
  2. TEGRETOL [Suspect]
     Active Substance: CARBAMAZEPINE
     Dosage: 600 MG, QD
     Route: 048

REACTIONS (16)
  - Drug reaction with eosinophilia and systemic symptoms [Recovered/Resolved]
  - Rash pruritic [Recovered/Resolved]
  - Erythema [Recovering/Resolving]
  - Erythema multiforme [Recovering/Resolving]
  - Suicidal ideation [Recovering/Resolving]
  - Weight decreased [Unknown]
  - Insomnia [Recovering/Resolving]
  - Depression [Recovering/Resolving]
  - Apathy [Recovering/Resolving]
  - Hepatic enzyme increased [Recovering/Resolving]
  - Emotional poverty [Recovering/Resolving]
  - Pyrexia [Recovered/Resolved]
  - Malaise [Unknown]
  - Liver function test abnormal [Recovering/Resolving]
  - Personality disorder [Recovering/Resolving]
  - Lymphadenopathy [Unknown]
